FAERS Safety Report 9171092 (Version 3)
Quarter: 2015Q2

REPORT INFORMATION
  Report Type: Spontaneous
  Country: US (occurrence: US)
  Receive Date: 20130319
  Receipt Date: 20150515
  Transmission Date: 20150821
  Serious: Yes (Life-Threatening, Hospitalization, Disabling, Congenital Anomaly, Other)
  Sender: FDA-Public Use
  Company Number: US-ELI_LILLY_AND_COMPANY-US201303003356

PATIENT
  Sex: Female

DRUGS (1)
  1. PROZAC [Suspect]
     Active Substance: FLUOXETINE HYDROCHLORIDE
     Indication: POSTPARTUM DEPRESSION
     Dosage: 20 MG, QD
     Route: 064

REACTIONS (8)
  - Lissencephaly [Unknown]
  - Respiratory syncytial virus infection [Unknown]
  - Microcephaly [Unknown]
  - Neonatal anoxia [Unknown]
  - Foetal exposure during pregnancy [Recovered/Resolved]
  - Generalised non-convulsive epilepsy [Unknown]
  - Bronchial hyperreactivity [Unknown]
  - Pneumonia [Unknown]
